FAERS Safety Report 4846451-2 (Version None)
Quarter: 2005Q4

REPORT INFORMATION
  Report Type: 
  Country: None (occurrence: None)
  Receive Date: 20051202
  Receipt Date: 20051123
  Transmission Date: 20060501
  Serious: Yes (Hospitalization, Other)
  Sender: FDA-Public Use
  Company Number: 2005145749

PATIENT
  Age: 45 Year
  Sex: Male
  Weight: 57.1532 kg

DRUGS (9)
  1. TIKOSYN [Suspect]
     Indication: VENTRICULAR TACHYCARDIA
     Dosage: 1 MG (0.5 MG, 2 IN 1 D), ORAL
     Route: 048
     Dates: start: 20050201
  2. REMERON [Suspect]
     Indication: DEPRESSION
     Dosage: 45 MG (45 MG, DAILY AT BEDTIME), ORAL
     Route: 048
     Dates: start: 20050701
  3. COUMADIN [Concomitant]
  4. COREG [Concomitant]
  5. LISINOPRIL [Concomitant]
  6. ASPIRIN [Concomitant]
  7. MAGNESIUM SUPPLEMENT (MAGNESIUM) [Concomitant]
  8. PROTONIX [Concomitant]
  9. SYNTHROID [Concomitant]

REACTIONS (2)
  - DEPRESSION [None]
  - VENTRICULAR TACHYCARDIA [None]
